FAERS Safety Report 9691959 (Version 1)
Quarter: 2013Q4

REPORT INFORMATION
  Report Type: Report from Study
  Country: CA (occurrence: CA)
  Receive Date: 20131118
  Receipt Date: 20131118
  Transmission Date: 20140711
  Serious: Yes (Hospitalization)
  Sender: FDA-Public Use
  Company Number: CA-ROCHE-1301847

PATIENT
  Age: 57 Year
  Sex: Female
  Weight: 127 kg

DRUGS (13)
  1. RITUXAN [Suspect]
     Indication: RHEUMATOID ARTHRITIS
     Route: 042
     Dates: start: 20130729
  2. NAPROSYN [Suspect]
     Indication: PRODUCT USED FOR UNKNOWN INDICATION
     Route: 065
  3. DIPHENHYDRAMINE HCL [Concomitant]
     Indication: PREMEDICATION
     Route: 048
     Dates: start: 20130729
  4. ACETAMINOPHEN [Concomitant]
     Indication: PREMEDICATION
     Route: 048
     Dates: start: 20130729
  5. METHYLPREDNISOLONE [Concomitant]
     Indication: PREMEDICATION
     Route: 042
     Dates: start: 20130729
  6. ELTROXIN [Concomitant]
  7. PREDNISONE [Concomitant]
  8. IRBESARTAN [Concomitant]
  9. LIPITOR [Concomitant]
  10. FOLIC ACID [Concomitant]
  11. METHOTREXATE [Concomitant]
  12. PLAQUENIL [Concomitant]
  13. TYLENOL [Concomitant]
     Dosage: AS NEEDED
     Route: 065

REACTIONS (2)
  - Pneumonia [Recovering/Resolving]
  - Swelling [Unknown]
